FAERS Safety Report 18866831 (Version 1)
Quarter: 2021Q1

REPORT INFORMATION
  Report Type: Spontaneous
  Country: US (occurrence: US)
  Receive Date: 20210209
  Receipt Date: 20210209
  Transmission Date: 20210420
  Serious: Yes (Other)
  Sender: FDA-Public Use
  Company Number: None

PATIENT
  Age: 69 Year
  Sex: Female
  Weight: 72.12 kg

DRUGS (10)
  1. LAMICTAL [Suspect]
     Active Substance: LAMOTRIGINE
     Indication: LUPUS-LIKE SYNDROME
     Dosage: ?          QUANTITY:1 PILL;?
     Route: 048
     Dates: start: 20201013, end: 20201026
  2. VITAMIN B12 [Concomitant]
     Active Substance: CYANOCOBALAMIN
  3. VITAMIN D3 [Concomitant]
     Active Substance: CHOLECALCIFEROL
  4. COLLACE [Concomitant]
  5. ALEVE [Concomitant]
     Active Substance: NAPROXEN SODIUM
  6. XYZAL [Concomitant]
     Active Substance: LEVOCETIRIZINE DIHYDROCHLORIDE
  7. CARBAMAZEPINE 200MG TABLET [Concomitant]
     Active Substance: CARBAMAZEPINE
  8. MOTRIN [Concomitant]
     Active Substance: IBUPROFEN
  9. TYLENOL [Concomitant]
     Active Substance: ACETAMINOPHEN
  10. AMLODIPIE 10MG [Concomitant]

REACTIONS (3)
  - Vomiting [None]
  - Dehydration [None]
  - Influenza like illness [None]

NARRATIVE: CASE EVENT DATE: 20201024
